FAERS Safety Report 15131137 (Version 7)
Quarter: 2021Q1

REPORT INFORMATION
  Report Type: Spontaneous
  Country: US (occurrence: US)
  Receive Date: 20180711
  Receipt Date: 20210203
  Transmission Date: 20210419
  Serious: No
  Sender: FDA-Public Use
  Company Number: US-PFIZER INC-2017397143

PATIENT
  Age: 65 Year
  Sex: Male
  Weight: 90.7 kg

DRUGS (22)
  1. CARBIDOPA/LEVODOPA [Concomitant]
     Active Substance: CARBIDOPA\LEVODOPA
     Indication: RESTLESS LEGS SYNDROME
     Dosage: 25MG/1/2 TABLET THREE TIMES A DAY AS NEEDED
     Route: 048
  2. FENTANYL. [Concomitant]
     Active Substance: FENTANYL
     Indication: PAIN
     Dosage: 100 MG, UNK
     Dates: start: 201706
  3. OMEPRAZOLE. [Concomitant]
     Active Substance: OMEPRAZOLE
     Indication: GASTRIC DISORDER
     Dosage: 40 MG, UNK
  4. TAMSULOSIN [Concomitant]
     Active Substance: TAMSULOSIN
     Dosage: 0.4 MG, UNK
  5. MIDODRINE [Concomitant]
     Active Substance: MIDODRINE
     Dosage: UNK
  6. SERTRALINE [Concomitant]
     Active Substance: SERTRALINE HYDROCHLORIDE
     Indication: DEPRESSION
     Dosage: 100 MG, 2X/DAY
     Route: 048
  7. CLONAZEPAM. [Concomitant]
     Active Substance: CLONAZEPAM
     Indication: ANXIETY
     Dosage: 1 MG 1/2?1 TABLET EVERY DAY
     Route: 048
  8. MELOXICAM. [Concomitant]
     Active Substance: MELOXICAM
     Indication: ARTHRITIS
     Dosage: 7.5 MG, 1X/DAY
     Route: 048
  9. TIZANIDINE. [Concomitant]
     Active Substance: TIZANIDINE
     Indication: MUSCLE SPASMS
     Dosage: 4 MG, UNK
  10. MONTELUKAST [Concomitant]
     Active Substance: MONTELUKAST SODIUM
     Indication: HYPERSENSITIVITY
     Dosage: 10 MG, 1X/DAY
     Route: 048
  11. LORATADINE. [Concomitant]
     Active Substance: LORATADINE
     Dosage: 10 MG, DAILY IN THE MORNING
     Route: 048
  12. ABILIFY [Concomitant]
     Active Substance: ARIPIPRAZOLE
     Indication: AFFECTIVE DISORDER
     Dosage: 5 MG, 1X/DAY
     Route: 048
  13. OXYCODONE [Concomitant]
     Active Substance: OXYCODONE
     Dosage: UNK (10?325 MG)
  14. SERTRALINE [Concomitant]
     Active Substance: SERTRALINE HYDROCHLORIDE
     Indication: ANXIETY
  15. PANTOPRAZOLE [Concomitant]
     Active Substance: PANTOPRAZOLE
     Indication: GASTRIC DISORDER
     Dosage: 40 MG, 1X/DAY
     Route: 048
  16. LYRICA [Suspect]
     Active Substance: PREGABALIN
     Dosage: 800 MG, 1X/DAY
     Route: 048
  17. BUSPIRONE [Concomitant]
     Active Substance: BUSPIRONE HYDROCHLORIDE
     Indication: AFFECTIVE DISORDER
     Dosage: 10 MG, DAILY AT BEDTIME
     Route: 048
  18. DULOXETINE. [Concomitant]
     Active Substance: DULOXETINE
     Dosage: 60 MG, 1X/DAY
     Route: 048
  19. TERBINAFINE. [Concomitant]
     Active Substance: TERBINAFINE
     Dosage: 250 MG, UNK
  20. LYRICA [Suspect]
     Active Substance: PREGABALIN
     Indication: NEUROPATHY PERIPHERAL
     Dosage: 300 MG, 2X/DAY
     Route: 048
     Dates: start: 2016, end: 201806
  21. OXYCODONE [Concomitant]
     Active Substance: OXYCODONE
     Indication: PAIN
     Dosage: 10 MG, UNK
  22. MITOG [Concomitant]
     Dosage: 5 MG, UNK

REACTIONS (9)
  - Abdominal discomfort [Unknown]
  - Pruritus [Unknown]
  - Prescribed overdose [Unknown]
  - Hyperhidrosis [Not Recovered/Not Resolved]
  - Condition aggravated [Not Recovered/Not Resolved]
  - Drug withdrawal syndrome [Unknown]
  - Nervousness [Not Recovered/Not Resolved]
  - Paraesthesia [Unknown]
  - Loss of personal independence in daily activities [Unknown]

NARRATIVE: CASE EVENT DATE: 201806
